FAERS Safety Report 6936406-6 (Version None)
Quarter: 2010Q3

REPORT INFORMATION
  Report Type: 
  Country: None (occurrence: None)
  Receive Date: 20100823
  Receipt Date: 20100817
  Transmission Date: 20110219
  Serious: Yes (Hospitalization)
  Sender: FDA-Public Use
  Company Number: US-SANOFI-AVENTIS-2010SA049373

PATIENT
  Age: 76 Year
  Sex: Male

DRUGS (3)
  1. GLYBURIDE [Suspect]
     Route: 048
     Dates: start: 20100501
  2. JANUVIA [Concomitant]
     Dates: start: 20100501
  3. INSULIN [Concomitant]
     Dates: start: 20100501

REACTIONS (4)
  - BLOOD GLUCOSE INCREASED [None]
  - OESOPHAGEAL RUPTURE [None]
  - UPPER GASTROINTESTINAL HAEMORRHAGE [None]
  - VOMITING [None]
